FAERS Safety Report 10071733 (Version 3)
Quarter: 2014Q2

REPORT INFORMATION
  Report Type: Spontaneous
  Country: US (occurrence: US)
  Receive Date: 20140411
  Receipt Date: 20140430
  Transmission Date: 20141212
  Serious: Yes (Other)
  Sender: FDA-Public Use
  Company Number: US-BEH-2013039035

PATIENT
  Sex: Female
  Weight: 72 kg

DRUGS (18)
  1. SOLU-MEDROL [Concomitant]
  2. ZOLOFT [Concomitant]
  3. LOESTRIN [Concomitant]
  4. CLARITHROMYCIN [Concomitant]
  5. GUAIATUSSIN [Concomitant]
  6. NUVARING [Concomitant]
  7. BENZONATATE [Concomitant]
  8. PRIVIGEN [Suspect]
     Dosage: ??-NOV-2013;
     Route: 042
  9. PRIVIGEN [Suspect]
     Indication: IMMUNODEFICIENCY COMMON VARIABLE
     Dosage: ??-NOV-2013
     Route: 042
  10. PRIVIGEN [Suspect]
     Route: 042
  11. PRIVIGEN [Suspect]
     Route: 042
  12. VYVANSE [Concomitant]
  13. LOSARTAN POTASSIUM [Concomitant]
  14. ACETAMINOPHEN [Concomitant]
  15. DIPHENHYDRAMINE [Concomitant]
  16. EPINEPHRINE [Concomitant]
  17. SALINE [Concomitant]
  18. SODIUM CHLORIDE [Concomitant]

REACTIONS (3)
  - Respiratory tract infection [Unknown]
  - Upper respiratory tract infection [Unknown]
  - Bronchitis [Unknown]
